FAERS Safety Report 12778645 (Version 1)
Quarter: 2016Q3

REPORT INFORMATION
  Report Type: Report from Study
  Country: DE (occurrence: DE)
  Receive Date: 20160926
  Receipt Date: 20160926
  Transmission Date: 20161109
  Serious: Yes (Hospitalization)
  Sender: FDA-Public Use
  Company Number: DE-ABBVIE-16K-062-1735992-00

PATIENT
  Age: 33 Year
  Sex: Male

DRUGS (2)
  1. HUMIRA [Suspect]
     Active Substance: ADALIMUMAB
     Indication: CROHN^S DISEASE
     Route: 058
     Dates: start: 20141215, end: 2016
  2. HUMIRA [Suspect]
     Active Substance: ADALIMUMAB
     Route: 058
     Dates: start: 2016

REACTIONS (3)
  - Abdominal mass [Recovering/Resolving]
  - Haematochezia [Recovered/Resolved]
  - Abdominal pain [Recovering/Resolving]

NARRATIVE: CASE EVENT DATE: 201608
